FAERS Safety Report 14394247 (Version 1)
Quarter: 2018Q1

REPORT INFORMATION
  Report Type: Spontaneous
  Country: US (occurrence: US)
  Receive Date: 20180116
  Receipt Date: 20180116
  Transmission Date: 20180509
  Serious: No
  Sender: FDA-Public Use
  Company Number: US-REGENERON PHARMACEUTICALS, INC.-2017-19653

PATIENT

DRUGS (2)
  1. EYLEA [Suspect]
     Active Substance: AFLIBERCEPT
     Indication: AGE-RELATED MACULAR DEGENERATION
     Dosage: 2 MG, EVERY 28 DAYS, OD
     Dates: start: 201507
  2. EYLEA [Suspect]
     Active Substance: AFLIBERCEPT
     Dosage: LAST DATE OF INJECTION, EVERY 28 DAYS, OD
     Dates: start: 20170731, end: 20170731

REACTIONS (1)
  - Upper respiratory tract infection [Recovered/Resolved]
